FAERS Safety Report 8590365 (Version 5)
Quarter: 2012Q4

REPORT INFORMATION
  Report Type: Spontaneous
  Country: CA (occurrence: None)
  Receive Date: 20120521
  Receipt Date: 20121219
  Transmission Date: 20130627
  Serious: Yes (Death, Hospitalization)
  Sender: FDA-Public Use
  Company Number: ACO_30294_2012

PATIENT
  Age: 68 Year
  Sex: Female

DRUGS (11)
  1. AMPYRA [Suspect]
     Indication: MULTIPLE SCLEROSIS
     Dates: start: 2005, end: 20120507
  2. OXYBUTYNIN [Concomitant]
  3. CALCIUM CARBONATE [Concomitant]
  4. METOPROLOL TARTRATE [Concomitant]
  5. PERINDOPRIL ERBUMINE [Concomitant]
  6. AQUIFY EYE DROPS (HYALURONATE SODIUM) [Concomitant]
  7. PLAQUENIL /00072602/ (HYDROXYCHLOROROQUINE PHOSPHATE) [Concomitant]
  8. FOSAMAX [Concomitant]
  9. EFFEXOR [Concomitant]
  10. GRAVOL (DIMENHYDRINATE) [Concomitant]
  11. BACLOFEN [Concomitant]

REACTIONS (29)
  - Cardiogenic shock [None]
  - Septic shock [None]
  - Mental status changes [None]
  - Depressed level of consciousness [None]
  - Blood sodium decreased [None]
  - Blood creatinine increased [None]
  - Blood thyroid stimulating hormone increased [None]
  - Mean cell haemoglobin increased [None]
  - Neutrophil percentage increased [None]
  - Blood chloride increased [None]
  - Carbon dioxide decreased [None]
  - Blood calcium increased [None]
  - Blood magnesium decreased [None]
  - Aspartate aminotransferase increased [None]
  - Troponin T increased [None]
  - White blood cell count increased [None]
  - Red blood cell count decreased [None]
  - Haemoglobin decreased [None]
  - Haematocrit decreased [None]
  - Livedo reticularis [None]
  - Peripheral coldness [None]
  - Respiratory distress [None]
  - Loss of consciousness [None]
  - Respiratory arrest [None]
  - Grand mal convulsion [None]
  - Muscular weakness [None]
  - Pulmonary oedema [None]
  - Blood potassium decreased [None]
  - Peripheral artery thrombosis [None]
